APPROVED DRUG PRODUCT: AMINOSYN II 4.25% IN DEXTROSE 25% IN PLASTIC CONTAINER
Active Ingredient: AMINO ACIDS; DEXTROSE
Strength: 4.25%;25GM/100ML
Dosage Form/Route: INJECTABLE;INJECTION
Application: N019504 | Product #002
Applicant: ABBOTT LABORATORIES PHARMACEUTICAL PRODUCTS DIV
Approved: Nov 7, 1986 | RLD: No | RS: No | Type: DISCN